FAERS Safety Report 19287720 (Version 2)
Quarter: 2021Q2

REPORT INFORMATION
  Report Type: Report from Study
  Country: None (occurrence: US)
  Receive Date: 20210522
  Receipt Date: 20210616
  Transmission Date: 20210717
  Serious: Yes (Other)
  Sender: FDA-Public Use
  Company Number: US-ABBVIE-21K-163-3899037-00

PATIENT
  Age: 73 Year
  Sex: Male
  Weight: 116.68 kg

DRUGS (3)
  1. SEPTRA [Suspect]
     Active Substance: SULFAMETHOXAZOLE\TRIMETHOPRIM
     Indication: BACTERIAL TEST POSITIVE
     Route: 065
     Dates: start: 20210330, end: 20210401
  2. HUMIRA [Suspect]
     Active Substance: ADALIMUMAB
     Indication: CROHN^S DISEASE
     Route: 058
     Dates: start: 2014
  3. SEPTRA [Suspect]
     Active Substance: SULFAMETHOXAZOLE\TRIMETHOPRIM
     Indication: PROSTATITIS

REACTIONS (27)
  - Faeces discoloured [Unknown]
  - Urinary incontinence [Recovered/Resolved]
  - Malignant neoplasm of spinal cord [Not Recovered/Not Resolved]
  - Faeces discoloured [Recovered/Resolved]
  - Blood urine present [Recovered/Resolved]
  - Blood calcium increased [Unknown]
  - Prostate cancer [Not Recovered/Not Resolved]
  - Pleural effusion [Recovered/Resolved]
  - Platelet count decreased [Not Recovered/Not Resolved]
  - Hepatic steatosis [Not Recovered/Not Resolved]
  - Chromaturia [Recovered/Resolved]
  - Hepatic cirrhosis [Not Recovered/Not Resolved]
  - Asthenia [Not Recovered/Not Resolved]
  - Weight decreased [Not Recovered/Not Resolved]
  - Fatigue [Not Recovered/Not Resolved]
  - Splenomegaly [Not Recovered/Not Resolved]
  - Nausea [Recovered/Resolved]
  - Hypersomnia [Not Recovered/Not Resolved]
  - Prostatitis [Not Recovered/Not Resolved]
  - Bacterial test positive [Recovered/Resolved]
  - Cardiac disorder [Not Recovered/Not Resolved]
  - Urinary incontinence [Unknown]
  - Diarrhoea [Unknown]
  - Peripheral venous disease [Not Recovered/Not Resolved]
  - Lymphoma [Not Recovered/Not Resolved]
  - Decreased appetite [Recovering/Resolving]
  - Pyrexia [Recovered/Resolved]

NARRATIVE: CASE EVENT DATE: 2019
